FAERS Safety Report 21406392 (Version 1)
Quarter: 2022Q4

REPORT INFORMATION
  Report Type: Report from Study
  Country: KR (occurrence: KR)
  Receive Date: 20221004
  Receipt Date: 20221004
  Transmission Date: 20230113
  Serious: Yes (Other)
  Sender: FDA-Public Use
  Company Number: KR-HBP-2022KR027411

PATIENT
  Age: 74 Year
  Sex: Female
  Weight: 56.6 kg

DRUGS (10)
  1. AKYNZEO (NETUPITANT\PALONOSETRON) [Suspect]
     Active Substance: NETUPITANT\PALONOSETRON
     Indication: Prophylaxis of nausea and vomiting
     Dosage: UNK, UNKNOWN
     Route: 048
     Dates: start: 20191203, end: 20191203
  2. AMLODIPINE CAMSYLATE [Concomitant]
     Active Substance: AMLODIPINE CAMSYLATE
     Indication: Hypertension
     Dosage: 5 MILLIGRAM, QD
     Route: 048
  3. ASPIRIN [Concomitant]
     Active Substance: ASPIRIN
     Indication: Hypertension
     Dosage: 100 MILLIGRAM, QD
     Route: 048
  4. ARICEPT [Concomitant]
     Active Substance: DONEPEZIL HYDROCHLORIDE
     Indication: Dementia
     Dosage: 7.5 MILLIGRAM, QD
     Route: 048
     Dates: start: 2000
  5. EDPA [Concomitant]
     Indication: Dementia
     Dosage: 5 DOSAGE FORM, BID
     Route: 048
     Dates: start: 2000
  6. TAXOTERE [Concomitant]
     Active Substance: DOCETAXEL
     Indication: Chemotherapy
     Dosage: 94 MILLIGRAM/SQ. METER, 3/WEEK
     Route: 042
     Dates: start: 20191203, end: 20191203
  7. TAXOTERE [Concomitant]
     Active Substance: DOCETAXEL
     Dosage: 94 MILLIGRAM/SQ. METER, 3/WEEK
     Route: 042
     Dates: start: 20191203, end: 20191203
  8. CISPLATIN [Concomitant]
     Active Substance: CISPLATIN
     Indication: Chemotherapy
     Dosage: UNK, 3/WEEK
     Route: 042
     Dates: start: 20191203, end: 20191203
  9. DEXAMETHASONE DAEWON [Concomitant]
     Indication: Premedication
     Dosage: UNK UNK, 3/WEEK
     Route: 042
     Dates: start: 20191203, end: 20200114
  10. PENIRAMIN [Concomitant]
     Indication: Premedication
     Dosage: 2 MILLILITER, 3/WEEK
     Route: 042
     Dates: start: 20191203, end: 20200114

REACTIONS (1)
  - Neutropenia [Recovered/Resolved]

NARRATIVE: CASE EVENT DATE: 20191211
